FAERS Safety Report 10363551 (Version 1)
Quarter: 2014Q3

REPORT INFORMATION
  Report Type: Report from Study
  Country: BR (occurrence: BR)
  Receive Date: 20140805
  Receipt Date: 20140805
  Transmission Date: 20150326
  Serious: Yes (Other)
  Sender: FDA-Public Use
  Company Number: PHHY2014BR095964

PATIENT
  Sex: Male
  Weight: 78 kg

DRUGS (6)
  1. CRESTOR [Concomitant]
     Active Substance: ROSUVASTATIN CALCIUM
     Indication: BLOOD CHOLESTEROL ABNORMAL
     Dosage: 1 DF, DAILY
     Dates: start: 2010
  2. PARIET [Concomitant]
     Active Substance: RABEPRAZOLE SODIUM
     Indication: HERNIA
     Dosage: 1 DF, DAILY
     Dates: start: 2006
  3. GLIFAGE [Concomitant]
     Active Substance: METFORMIN HYDROCHLORIDE
     Indication: DIABETES MELLITUS
     Dosage: 2 DF, DAILY
     Dates: start: 2004
  4. SOMALGIN [Concomitant]
     Active Substance: ASPIRIN\DIHYDROXYALUMINUM AMINOACETATE ANHYDROUS\MAGNESIUM CARBONATE
     Indication: CARDIOVASCULAR DISORDER
     Dosage: 1 DF, DAILY
     Dates: start: 2004
  5. ACLASTA [Suspect]
     Active Substance: ZOLEDRONIC ACID
     Indication: OSTEOPOROSIS
     Dosage: UNK UKN, ONCE A YEAR
     Route: 042
  6. ADDERA D3 [Concomitant]
     Active Substance: CHOLECALCIFEROL
     Indication: OSTEOPOROSIS
     Dosage: 1 DF, DAILY
     Dates: start: 2010

REACTIONS (7)
  - Pain [Recovering/Resolving]
  - Back pain [Recovering/Resolving]
  - Spinal pain [Recovering/Resolving]
  - Neck pain [Recovering/Resolving]
  - Pyrexia [Recovering/Resolving]
  - Abdominal pain [Recovering/Resolving]
  - Functional gastrointestinal disorder [Recovering/Resolving]
